FAERS Safety Report 15945773 (Version 1)
Quarter: 2019Q1

REPORT INFORMATION
  Report Type: Spontaneous
  Country: US (occurrence: US)
  Receive Date: 20190119
  Receipt Date: 20190119
  Transmission Date: 20190417
  Serious: No
  Sender: FDA-Public Use
  Company Number: None

PATIENT
  Age: 75 Year
  Sex: Female

DRUGS (1)
  1. IMATINIB  400MG TAB [Suspect]
     Active Substance: IMATINIB
     Dates: start: 201802

REACTIONS (1)
  - Electrocardiogram abnormal [None]

NARRATIVE: CASE EVENT DATE: 20190119
